FAERS Safety Report 7094552-3 (Version None)
Quarter: 2010Q4

REPORT INFORMATION
  Report Type: 
  Country: None (occurrence: None)
  Receive Date: 20101110
  Receipt Date: 20101027
  Transmission Date: 20110411
  Serious: Yes (Other)
  Sender: FDA-Public Use
  Company Number: PHHY2010JP73318

PATIENT
  Sex: Male
  Weight: 75 kg

DRUGS (9)
  1. TASIGNA [Suspect]
     Indication: CHRONIC MYELOID LEUKAEMIA
     Dosage: 400MG DAILY
     Dates: start: 20090520, end: 20090902
  2. TASIGNA [Suspect]
     Dosage: 600MG DAILY
     Route: 048
     Dates: start: 20090903, end: 20091111
  3. KLARICID [Concomitant]
     Indication: PNEUMONIA
     Dosage: 200 MG, UNK
     Route: 048
     Dates: start: 20081022
  4. DIFLUCAN [Concomitant]
     Indication: PROPHYLAXIS
     Dosage: 200 MG, UNK
     Route: 048
     Dates: start: 20080213
  5. NAUZELIN [Concomitant]
     Indication: PROPHYLAXIS
     Dosage: 30 MG, UNK
     Route: 048
     Dates: start: 20070926
  6. BAKTAR [Concomitant]
     Indication: PROPHYLAXIS
     Dosage: UNK
     Route: 048
     Dates: start: 20070802
  7. TAKEPRON [Concomitant]
     Indication: PROPHYLAXIS
     Dosage: 30 MG, UNK
     Route: 048
     Dates: start: 20080123, end: 20091118
  8. PREDNISOLONE [Concomitant]
     Indication: BRONCHITIS CHRONIC
     Dosage: UNK
     Route: 048
     Dates: start: 20080723
  9. LULICON [Suspect]
     Indication: ONYCHOMYCOSIS
     Dosage: 1 DF, UNK
     Dates: start: 20090520, end: 20090602

REACTIONS (1)
  - INTERSTITIAL LUNG DISEASE [None]
